FAERS Safety Report 9440203 (Version 1)
Quarter: 2013Q3

REPORT INFORMATION
  Report Type: Spontaneous
  Country: US (occurrence: None)
  Receive Date: 20130805
  Receipt Date: 20130805
  Transmission Date: 20140515
  Serious: Yes (Other)
  Sender: FDA-Public Use
  Company Number: None

PATIENT
  Age: 53 Year
  Sex: Male
  Weight: 94.35 kg

DRUGS (6)
  1. HCG [Suspect]
     Indication: OBESITY
     Dosage: 1000UNITS  DAILY  IV
     Route: 042
     Dates: start: 20130410, end: 20130615
  2. TESTOSTERONE CYPIONATE [Suspect]
     Indication: BLOOD TESTOSTERONE DECREASED
     Dosage: 1CC  WEEKLY  IV
     Route: 042
     Dates: start: 20130410, end: 20130629
  3. TEVTROPIN [Concomitant]
  4. ANASTRAZOLE TABLETS 1MG [Concomitant]
  5. B12 [Concomitant]
  6. CLOMIPHENE [Concomitant]

REACTIONS (2)
  - No therapeutic response [None]
  - Product quality issue [None]
